FAERS Safety Report 7351626-7 (Version None)
Quarter: 2011Q1

REPORT INFORMATION
  Report Type: 
  Country: None (occurrence: None)
  Receive Date: 20110315
  Receipt Date: 20110304
  Transmission Date: 20110831
  Serious: Yes (Hospitalization, Other)
  Sender: FDA-Public Use
  Company Number: GR-BIOGENIDEC-2011BI001824

PATIENT
  Age: 57 Year
  Sex: Female
  Weight: 65 kg

DRUGS (1)
  1. TYSABRI [Suspect]
     Indication: MULTIPLE SCLEROSIS
     Route: 042
     Dates: end: 20100901

REACTIONS (4)
  - PROGRESSIVE MULTIFOCAL LEUKOENCEPHALOPATHY [None]
  - PARESIS [None]
  - MULTIPLE SCLEROSIS [None]
  - NEOPLASM [None]
